FAERS Safety Report 5197096-9 (Version None)
Quarter: 2007Q1

REPORT INFORMATION
  Report Type: 
  Country: None (occurrence: None)
  Receive Date: 20070103
  Receipt Date: 20061221
  Transmission Date: 20070707
  Serious: Yes (Death)
  Sender: FDA-Public Use
  Company Number: US-ELI_LILLY_AND_COMPANY-US200612004128

PATIENT
  Age: 19 Year

DRUGS (2)
  1. HUMAN INSULIN (RDNA) UNK MANUFACTURER [Suspect]
     Route: 064
  2. METHADONE HYDROCHLORIDE [Concomitant]
     Dates: end: 20040922

REACTIONS (8)
  - ACCIDENTAL OVERDOSE [None]
  - ADENOIDAL HYPERTROPHY [None]
  - CAESAREAN SECTION [None]
  - DRUG EXPOSURE DURING PREGNANCY [None]
  - DRUG EXPOSURE VIA BREAST MILK [None]
  - LARGE FOR DATES BABY [None]
  - SLEEP APNOEA SYNDROME [None]
  - TONSILLAR HYPERTROPHY [None]
